FAERS Safety Report 6834936-9 (Version None)
Quarter: 2010Q3

REPORT INFORMATION
  Report Type: 
  Country: None (occurrence: None)
  Receive Date: 20100712
  Receipt Date: 20070410
  Transmission Date: 20110219
  Serious: No
  Sender: FDA-Public Use
  Company Number: US-PFIZER INC-2007029695

PATIENT
  Sex: Female
  Weight: 54.43 kg

DRUGS (2)
  1. CHANTIX [Suspect]
     Indication: SMOKING CESSATION THERAPY
     Dates: start: 20070201
  2. IBUPROFEN [Concomitant]
     Indication: TENDONITIS

REACTIONS (4)
  - HOT FLUSH [None]
  - NIGHT SWEATS [None]
  - TENDONITIS [None]
  - URINE ODOUR ABNORMAL [None]
